FAERS Safety Report 7348919-6 (Version None)
Quarter: 2011Q1

REPORT INFORMATION
  Report Type: 
  Country: None (occurrence: None)
  Receive Date: 20110303
  Receipt Date: 20110225
  Transmission Date: 20110831
  Serious: Yes (Death)
  Sender: FDA-Public Use
  Company Number: 2010SP047416

PATIENT
  Age: 57 Year
  Sex: Male

DRUGS (8)
  1. RABEPRAZOLE SODIUM [Concomitant]
  2. DOMPERIDONE [Concomitant]
  3. FLUNITRAZEPAM [Concomitant]
  4. MIRTAZAPINE [Suspect]
     Indication: DEPRESSION
     Dosage: 15 MG; QD; PO
     Route: 048
     Dates: start: 20100724, end: 20100825
  5. REBAMIPIDE [Concomitant]
  6. PAROXETINE HYDROCHLORIDE [Concomitant]
  7. CHINESE HERBAL MEDICINE [Concomitant]
  8. ALPRAZOLAM [Concomitant]

REACTIONS (5)
  - COMPLETED SUICIDE [None]
  - FEELING ABNORMAL [None]
  - DEPRESSION [None]
  - CONDITION AGGRAVATED [None]
  - DELUSION [None]
